FAERS Safety Report 16109860 (Version 1)
Quarter: 2019Q1

REPORT INFORMATION
  Report Type: Spontaneous
  Country: CN (occurrence: CN)
  Receive Date: 20190325
  Receipt Date: 20190325
  Transmission Date: 20190418
  Serious: Yes (Other)
  Sender: FDA-Public Use
  Company Number: CN-ROCHE-2285877

PATIENT
  Age: 55 Year
  Sex: Female
  Weight: 56 kg

DRUGS (12)
  1. MABTHERA [Suspect]
     Active Substance: RITUXIMAB
     Indication: B-CELL LYMPHOMA
     Dosage: ON DAY 0
     Route: 041
     Dates: start: 20140710, end: 20141001
  2. MABTHERA [Suspect]
     Active Substance: RITUXIMAB
     Dosage: ON DAY 0
     Route: 041
     Dates: start: 20151019, end: 20151020
  3. CYCLOPHOSPHAMIDE. [Suspect]
     Active Substance: CYCLOPHOSPHAMIDE
     Dosage: ON DAY 1
     Route: 042
     Dates: start: 20151020, end: 20151020
  4. VINCRISTINE [Suspect]
     Active Substance: VINCRISTINE
     Indication: B-CELL LYMPHOMA
     Dosage: ON DAY 1
     Route: 042
     Dates: start: 20140718, end: 20141001
  5. VINCRISTINE [Suspect]
     Active Substance: VINCRISTINE
     Dosage: ON DAY 1
     Route: 042
     Dates: start: 20151020, end: 20151020
  6. PREDNISONE. [Suspect]
     Active Substance: PREDNISONE
     Dosage: FROM DAY 1 TO DAY 14
     Route: 048
     Dates: start: 20151020, end: 20151020
  7. CYCLOPHOSPHAMIDE. [Suspect]
     Active Substance: CYCLOPHOSPHAMIDE
     Indication: B-CELL LYMPHOMA
     Dosage: ON DAY 1
     Route: 042
     Dates: start: 20140718, end: 20141001
  8. CYCLOPHOSPHAMIDE. [Suspect]
     Active Substance: CYCLOPHOSPHAMIDE
     Dosage: ON DAY 1
     Route: 042
     Dates: start: 20150512, end: 20150512
  9. PREDNISONE. [Suspect]
     Active Substance: PREDNISONE
     Indication: B-CELL LYMPHOMA
     Dosage: DAY1-14
     Route: 048
     Dates: start: 20140718, end: 20141001
  10. PREDNISONE. [Suspect]
     Active Substance: PREDNISONE
     Dosage: FROM DAY 1 TO DAY 14
     Route: 048
     Dates: start: 20150512, end: 20150512
  11. MABTHERA [Suspect]
     Active Substance: RITUXIMAB
     Dosage: ON DAY 0
     Route: 041
     Dates: start: 20150511, end: 20150511
  12. VINCRISTINE [Suspect]
     Active Substance: VINCRISTINE
     Dosage: ON DAY 1
     Route: 042
     Dates: start: 20150512, end: 20150512

REACTIONS (2)
  - Upper gastrointestinal haemorrhage [Unknown]
  - Bone marrow failure [Unknown]
